FAERS Safety Report 20803463 (Version 1)
Quarter: 2022Q2

REPORT INFORMATION
  Report Type: Report from Study
  Country: CA (occurrence: CA)
  Receive Date: 20220509
  Receipt Date: 20220509
  Transmission Date: 20220721
  Serious: Yes (Death)
  Sender: FDA-Public Use
  Company Number: CA-NOVARTISPH-NVSC2021CA034556

PATIENT
  Age: 70 Year
  Sex: Female

DRUGS (1)
  1. KISQALI [Suspect]
     Active Substance: RIBOCICLIB
     Indication: Breast cancer metastatic
     Dosage: UNK
     Route: 048
     Dates: start: 20190710

REACTIONS (5)
  - Death [Fatal]
  - Tooth disorder [Unknown]
  - Blood disorder [Unknown]
  - Gait inability [Unknown]
  - Vomiting [Unknown]

NARRATIVE: CASE EVENT DATE: 20211211
